FAERS Safety Report 21808594 (Version 1)
Quarter: 2023Q1

REPORT INFORMATION
  Report Type: Spontaneous
  Country: US (occurrence: US)
  Receive Date: 20230103
  Receipt Date: 20230103
  Transmission Date: 20230417
  Serious: No
  Sender: FDA-Public Use
  Company Number: US-TEVA-2022-US-2838709

PATIENT
  Age: 41 Year
  Sex: Female

DRUGS (3)
  1. NYSTATIN [Suspect]
     Active Substance: NYSTATIN
     Indication: Vulvovaginal pruritus
     Dosage: 100,000 IU/G, TWICE
     Route: 065
     Dates: start: 2022
  2. NYSTATIN [Suspect]
     Active Substance: NYSTATIN
     Indication: Vulval eczema
  3. DESONIDE [Concomitant]
     Active Substance: DESONIDE
     Indication: Rash

REACTIONS (1)
  - Urinary tract infection [Unknown]
